FAERS Safety Report 22938469 (Version 2)
Quarter: 2023Q4

REPORT INFORMATION
  Report Type: Spontaneous
  Country: US (occurrence: US)
  Receive Date: 20230913
  Receipt Date: 20231130
  Transmission Date: 20240110
  Serious: Yes (Other)
  Sender: FDA-Public Use
  Company Number: US-BRISTOL-MYERS SQUIBB COMPANY-2023-128176

PATIENT
  Age: 69 Year
  Sex: Female
  Weight: 103.42 kg

DRUGS (2)
  1. REVLIMID [Suspect]
     Active Substance: LENALIDOMIDE
     Indication: Plasma cell myeloma
     Dosage: 3WKSON,1WKOFF
     Route: 048
  2. REVLIMID [Suspect]
     Active Substance: LENALIDOMIDE
     Indication: Plasma cell myeloma

REACTIONS (7)
  - Arthralgia [Unknown]
  - Back pain [Unknown]
  - Anaemia [Unknown]
  - Neuropathy peripheral [Unknown]
  - Peripheral swelling [Unknown]
  - Mass [Unknown]
  - Bursitis [Unknown]
